FAERS Safety Report 5585368-5 (Version None)
Quarter: 2008Q1

REPORT INFORMATION
  Report Type: 
  Country: None (occurrence: None)
  Receive Date: 20080109
  Receipt Date: 20080104
  Transmission Date: 20080703
  Serious: Yes (Hospitalization)
  Sender: FDA-Public Use
  Company Number: GB-JNJFOC-20080100826

PATIENT
  Age: 58 Year
  Sex: Female

DRUGS (8)
  1. IBUPROFEN [Suspect]
     Indication: BACK PAIN
     Route: 048
  2. DICLOFENAC SODIUM [Suspect]
     Indication: BACK PAIN
     Route: 048
  3. ATROVENT [Concomitant]
     Indication: ASTHMA
     Route: 055
  4. CO-CODAMOL [Concomitant]
     Indication: BACK PAIN
     Route: 048
  5. DOMPERIDONE [Concomitant]
     Indication: ANTIEMETIC SUPPORTIVE CARE
     Route: 048
  6. GAVISCON [Concomitant]
     Indication: DYSPEPSIA
     Route: 048
  7. OMEPRAZOLE [Concomitant]
     Indication: PROPHYLAXIS AGAINST GASTROINTESTINAL ULCER
     Route: 048
  8. ALBUTEROL [Concomitant]
     Indication: ASTHMA
     Route: 055

REACTIONS (2)
  - CONVULSION [None]
  - HAEMATEMESIS [None]
